FAERS Safety Report 8290409-0 (Version None)
Quarter: 2012Q2

REPORT INFORMATION
  Report Type: 
  Country: None (occurrence: None)
  Receive Date: 20120413
  Receipt Date: 20120413
  Transmission Date: 20120825
  Serious: Yes (Life-Threatening, Hospitalization)
  Sender: FDA-Public Use
  Company Number: None

PATIENT
  Age: 66 Year
  Sex: Male
  Weight: 122.4712 kg

DRUGS (1)
  1. KEFLEX [Suspect]
     Indication: INFECTION PROPHYLAXIS
     Dosage: 500 MG 3 X DAILY 1 DOSE
     Dates: start: 20111221

REACTIONS (4)
  - DYSPNOEA [None]
  - ERYTHEMA [None]
  - SWELLING [None]
  - PRODUCT ODOUR ABNORMAL [None]
